FAERS Safety Report 21410016 (Version 5)
Quarter: 2022Q4

REPORT INFORMATION
  Report Type: Report from Study
  Country: US (occurrence: None)
  Receive Date: 20221005
  Receipt Date: 20221114
  Transmission Date: 20230113
  Serious: Yes (Hospitalization)
  Sender: FDA-Public Use
  Company Number: US-ROCHE-3187026

PATIENT
  Age: 59 Year
  Sex: Male
  Weight: 75.5 kg

DRUGS (26)
  1. PLACEBO [Suspect]
     Active Substance: UNSPECIFIED INGREDIENT
     Indication: Primary progressive multiple sclerosis
     Dosage: ON 16/SEP/2022, START DATE OF MOST RECENT DOSE OF STUDY DRUG PRIOR TO AE WAS ADMINISTERED.?ON 20/SEP
     Route: 048
     Dates: start: 20211208
  2. OCRELIZUMAB [Suspect]
     Active Substance: OCRELIZUMAB
     Indication: Primary progressive multiple sclerosis
     Dosage: ON 01/JUN/2022, MOST RECENT DOSE OF STUDY DRUG PRIOR TO AE AND SAE WAS ADMINISTERED.
     Route: 042
     Dates: start: 20211208
  3. VALSARTAN [Concomitant]
     Active Substance: VALSARTAN
     Indication: Essential hypertension
     Route: 048
     Dates: start: 201705
  4. HYDROCHLOROTHIAZIDE [Concomitant]
     Active Substance: HYDROCHLOROTHIAZIDE
     Indication: Essential hypertension
     Route: 048
     Dates: start: 201705
  5. VARDENAFIL [Concomitant]
     Active Substance: VARDENAFIL HYDROCHLORIDE
     Indication: Erectile dysfunction
     Route: 048
     Dates: start: 2017
  6. AFRIN [Concomitant]
     Active Substance: OXYMETAZOLINE
     Dosage: 1 SPRAY
     Route: 045
     Dates: start: 1980
  7. NASACORT [Concomitant]
     Active Substance: TRIAMCINOLONE ACETONIDE
     Dosage: 1 SPRAY
     Route: 045
     Dates: start: 1980
  8. MYLANTA [Concomitant]
     Active Substance: ALUMINUM HYDROXIDE\DIMETHICONE\MAGNESIUM HYDROXIDE
     Indication: Gastrooesophageal reflux disease
     Route: 048
     Dates: start: 1997
  9. VITAMIN C [Concomitant]
     Active Substance: ASCORBIC ACID
     Route: 048
     Dates: start: 2012
  10. CANNABIS SATIVA SUBSP. INDICA TOP [Concomitant]
     Active Substance: CANNABIS SATIVA SUBSP. INDICA TOP
     Indication: Primary progressive multiple sclerosis
     Route: 055
     Dates: start: 20191219
  11. TYLENOL [Concomitant]
     Active Substance: ACETAMINOPHEN
     Indication: Pyrexia
     Route: 048
     Dates: start: 20220917, end: 20220919
  12. MOTRIN [Concomitant]
     Active Substance: IBUPROFEN
     Indication: Pyrexia
     Route: 048
     Dates: start: 20220919, end: 20220921
  13. CIPROFLOXACIN [Concomitant]
     Active Substance: CIPROFLOXACIN
     Route: 048
     Dates: start: 20220919, end: 20220921
  14. ZOFRAN [Concomitant]
     Active Substance: ONDANSETRON HYDROCHLORIDE
     Indication: Nausea
     Route: 042
     Dates: start: 20220921, end: 20220921
  15. SODIUM CHLORIDE [Concomitant]
     Active Substance: SODIUM CHLORIDE
     Indication: Dehydration
     Route: 042
     Dates: start: 20220919, end: 20220919
  16. FAMOTIDINE [Concomitant]
     Active Substance: FAMOTIDINE
     Indication: Gastrooesophageal reflux disease
     Route: 042
     Dates: start: 20220919, end: 20220919
  17. FAMOTIDINE [Concomitant]
     Active Substance: FAMOTIDINE
     Indication: Prophylaxis
  18. KETOROLAC [Concomitant]
     Active Substance: KETOROLAC TROMETHAMINE
     Indication: Headache
     Route: 042
     Dates: start: 20220919, end: 20220919
  19. HYDROCORTISONE [Concomitant]
     Active Substance: HYDROCORTISONE
     Indication: Haemorrhoids
     Route: 054
     Dates: start: 20221003, end: 20221017
  20. METAMUCIL [Concomitant]
     Active Substance: PLANTAGO SEED
     Dosage: 2 TBSP
     Route: 048
     Dates: start: 202107
  21. MIRALAX [Concomitant]
     Active Substance: POLYETHYLENE GLYCOL 3350
     Indication: Constipation
     Dosage: 1 OTHER
     Route: 048
     Dates: start: 20220926, end: 20220926
  22. VALACYCLOVIR HYDROCHLORIDE [Concomitant]
     Active Substance: VALACYCLOVIR HYDROCHLORIDE
     Indication: Bell^s palsy
     Route: 048
     Dates: start: 20221006, end: 20221013
  23. METHYLPREDNISOLONE [Concomitant]
     Active Substance: METHYLPREDNISOLONE
     Indication: Bell^s palsy
     Route: 048
     Dates: start: 20221010, end: 20221013
  24. METHYLPREDNISOLONE [Concomitant]
     Active Substance: METHYLPREDNISOLONE
     Route: 048
     Dates: start: 20221014, end: 20221017
  25. ARTIFICIAL TEARS [Concomitant]
     Active Substance: GLYCERIN\HYPROMELLOSES\POLYETHYLENE GLYCOL 400
     Indication: Bell^s palsy
     Route: 047
     Dates: start: 20221006, end: 20221023
  26. CLOBETASOL [Concomitant]
     Active Substance: CLOBETASOL
     Indication: Bell^s palsy
     Route: 061
     Dates: start: 20221006, end: 20221023

REACTIONS (3)
  - Aspartate aminotransferase increased [Recovered/Resolved]
  - Alanine aminotransferase increased [Recovered/Resolved]
  - Abdominal pain lower [Recovered/Resolved]

NARRATIVE: CASE EVENT DATE: 20220916
